FAERS Safety Report 7506727-7 (Version None)
Quarter: 2011Q2

REPORT INFORMATION
  Report Type: 
  Country: None (occurrence: None)
  Receive Date: 20110526
  Receipt Date: 20110520
  Transmission Date: 20111010
  Serious: Yes (Life-Threatening, Other)
  Sender: FDA-Public Use
  Company Number: CN-PFIZER INC-2008088645

PATIENT
  Age: 13 Year
  Sex: Female

DRUGS (3)
  1. DEXAMETHASONE [Concomitant]
     Dosage: ONE DOSE
  2. AZITHROMYCIN [Suspect]
     Indication: INFECTION
     Dosage: UNK
     Route: 042
     Dates: start: 20060101, end: 20060101
  3. LANATOSIDE C [Concomitant]
     Dosage: ONE DOSE

REACTIONS (5)
  - ELECTROLYTE IMBALANCE [None]
  - LIVER DISORDER [None]
  - HEPATIC ENCEPHALOPATHY [None]
  - ACID BASE BALANCE ABNORMAL [None]
  - RENAL FAILURE [None]
